FAERS Safety Report 6519358-2 (Version None)
Quarter: 2009Q4

REPORT INFORMATION
  Report Type: 
  Country: None (occurrence: None)
  Receive Date: 20091224
  Receipt Date: 20091224
  Transmission Date: 20100525
  Serious: Yes (Other)
  Sender: FDA-Public Use
  Company Number: None

PATIENT
  Sex: Male

DRUGS (1)
  1. GUANFACINE HYDROCHLORIDE [Suspect]
     Indication: ATTENTION DEFICIT/HYPERACTIVITY DISORDER
     Dosage: 1MG 1/2 QAM 1 Q HS
     Dates: start: 20091001, end: 20091201

REACTIONS (2)
  - ABNORMAL BEHAVIOUR [None]
  - SEDATION [None]
